FAERS Safety Report 8454378 (Version 5)
Quarter: 2013Q3

REPORT INFORMATION
  Report Type: Spontaneous
  Country: AR (occurrence: AR)
  Receive Date: 20120312
  Receipt Date: 20130828
  Transmission Date: 20140515
  Serious: Yes (Hospitalization, Disabling, Other)
  Sender: FDA-Public Use
  Company Number: AR-ABBOTT-12P-007-0912116-00

PATIENT
  Age: 45 Year
  Sex: Male

DRUGS (4)
  1. HUMIRA [Suspect]
     Indication: ERYTHRODERMIC PSORIASIS
     Route: 058
     Dates: start: 201109, end: 201203
  2. HUMIRA [Suspect]
     Indication: PSORIATIC ARTHROPATHY
  3. METHOTREXATE [Concomitant]
     Indication: PSORIATIC ARTHROPATHY
     Route: 065
  4. METHOTREXATE [Concomitant]
     Indication: PSORIASIS

REACTIONS (16)
  - Myelitis transverse [Not Recovered/Not Resolved]
  - Muscular weakness [Recovering/Resolving]
  - Paraparesis [Recovering/Resolving]
  - Hypoaesthesia [Recovering/Resolving]
  - Sensorimotor disorder [Recovering/Resolving]
  - Anal sphincter atony [Recovering/Resolving]
  - Extensor plantar response [Recovering/Resolving]
  - Reflexes abnormal [Recovering/Resolving]
  - Pyrexia [Recovering/Resolving]
  - Paraesthesia [Unknown]
  - Extra dose administered [Unknown]
  - Gait disturbance [Unknown]
  - Nail injury [Unknown]
  - Joint injury [Unknown]
  - Neurogenic bladder [Unknown]
  - Neuropathy peripheral [Not Recovered/Not Resolved]
